FAERS Safety Report 8062744-2 (Version None)
Quarter: 2012Q1

REPORT INFORMATION
  Report Type: 
  Country: None (occurrence: None)
  Receive Date: 20120123
  Receipt Date: 20120118
  Transmission Date: 20120608
  Serious: Yes (Hospitalization)
  Sender: FDA-Public Use
  Company Number: US-PFIZER INC-2012015757

PATIENT
  Sex: Female

DRUGS (4)
  1. PROTONIX [Suspect]
     Dosage: UNK
  2. ZOLOFT [Suspect]
     Dosage: UNK
  3. PROCARDIA XL [Suspect]
     Dosage: UNK
  4. LIPITOR [Suspect]
     Dosage: UNK

REACTIONS (1)
  - ASTHMA [None]
